FAERS Safety Report 6005590-3 (Version None)
Quarter: 2008Q4

REPORT INFORMATION
  Report Type: 
  Country: None (occurrence: None)
  Receive Date: 20081215
  Receipt Date: 20081202
  Transmission Date: 20090506
  Serious: Yes (Other)
  Sender: FDA-Public Use
  Company Number: VAL_00129_2008

PATIENT
  Age: 48 Year
  Sex: Male

DRUGS (2)
  1. CARBAMAZEPINE (CARBAMAZEPINE) [Suspect]
     Indication: PETIT MAL EPILEPSY
     Dosage: (200 MG QD ORAL)
     Route: 048
  2. PHENOBARBITAL [Concomitant]

REACTIONS (1)
  - INTERSTITIAL LUNG DISEASE [None]
